FAERS Safety Report 23710908 (Version 1)
Quarter: 2024Q2

REPORT INFORMATION
  Report Type: Spontaneous
  Country: FR (occurrence: FR)
  Receive Date: 20240405
  Receipt Date: 20240405
  Transmission Date: 20240716
  Serious: Yes (Other)
  Sender: FDA-Public Use
  Company Number: None

PATIENT
  Age: 45 Year
  Sex: Male

DRUGS (5)
  1. ETOPOSIDE [Suspect]
     Active Substance: ETOPOSIDE
     Indication: Cutaneous lymphoma
     Dosage: CYCLE 1, ETOPOSIDE TEVA
     Route: 042
     Dates: start: 20240115, end: 20240117
  2. CYCLOPHOSPHAMIDE [Suspect]
     Active Substance: CYCLOPHOSPHAMIDE
     Indication: Cutaneous lymphoma
     Dosage: CYCLE 1
     Route: 042
     Dates: start: 20240115, end: 20240115
  3. PREDNISONE [Suspect]
     Active Substance: PREDNISONE
     Indication: Cutaneous lymphoma
     Dosage: CYCLE 1
     Route: 048
     Dates: start: 20240115, end: 20240119
  4. VINCRISTINE [Suspect]
     Active Substance: VINCRISTINE
     Indication: Cutaneous lymphoma
     Dosage: CYCLE 1
     Route: 042
     Dates: start: 20240115, end: 20240115
  5. DOXORUBICIN [Suspect]
     Active Substance: DOXORUBICIN
     Indication: Cutaneous lymphoma
     Dosage: CYCLE 1
     Route: 042
     Dates: start: 20240115, end: 20240115

REACTIONS (1)
  - Palmar-plantar erythrodysaesthesia syndrome [Recovering/Resolving]

NARRATIVE: CASE EVENT DATE: 20240202
